FAERS Safety Report 9407141 (Version 1)
Quarter: 2013Q3

REPORT INFORMATION
  Report Type: Spontaneous
  Country: ES (occurrence: ES)
  Receive Date: 20130718
  Receipt Date: 20130718
  Transmission Date: 20140515
  Serious: Yes (Death, Hospitalization)
  Sender: FDA-Public Use
  Company Number: PHHY2013ES075361

PATIENT
  Age: 76 Year
  Sex: Female

DRUGS (4)
  1. AMIKACIN [Suspect]
     Indication: INFECTION
     Dosage: UNK
  2. VANCOMYCIN [Suspect]
     Indication: INFECTION
  3. ACICLOVIR [Suspect]
     Indication: INFECTION
  4. PANTOPRAZOLE [Suspect]

REACTIONS (7)
  - Infection [Fatal]
  - Back pain [Recovered/Resolved]
  - Hypomagnesaemia [Recovering/Resolving]
  - Irritability [Recovering/Resolving]
  - Muscular weakness [Recovering/Resolving]
  - Tremor [Recovering/Resolving]
  - Grand mal convulsion [Recovering/Resolving]
